FAERS Safety Report 18213575 (Version 4)
Quarter: 2021Q2

REPORT INFORMATION
  Report Type: Spontaneous
  Country: US (occurrence: US)
  Receive Date: 20200831
  Receipt Date: 20210630
  Transmission Date: 20210717
  Serious: No
  Sender: FDA-Public Use
  Company Number: US-PFIZER INC-2020301670

PATIENT
  Age: 80 Year
  Sex: Female

DRUGS (3)
  1. BRAFTOVI [Suspect]
     Active Substance: ENCORAFENIB
     Indication: MALIGNANT MELANOMA OF EYELID
     Dosage: 300 MG, 1X/DAY (300 MG ONCE DAILY)
     Dates: start: 20200410
  2. MEKTOVI [Suspect]
     Active Substance: BINIMETINIB
     Indication: MALIGNANT MELANOMA OF EYELID
     Dosage: 30 MG, DAILY (15 MG TAKES 2 CAPSULES DAILY)
  3. MEKTOVI [Suspect]
     Active Substance: BINIMETINIB
     Dosage: 30 MG, 2X/DAY (30 MG TWICE DAILY)
     Dates: start: 20200410

REACTIONS (5)
  - Dysphonia [Unknown]
  - Fatigue [Not Recovered/Not Resolved]
  - Abdominal pain upper [Unknown]
  - Gastritis [Unknown]
  - Alopecia [Unknown]
